FAERS Safety Report 5422007-8 (Version None)
Quarter: 2007Q3

REPORT INFORMATION
  Report Type: 
  Country: None (occurrence: None)
  Receive Date: 20070822
  Receipt Date: 20070814
  Transmission Date: 20080115
  Serious: Yes (Other)
  Sender: FDA-Public Use
  Company Number: PHEH2007US11130

PATIENT
  Sex: Female

DRUGS (1)
  1. ELIDEL [Suspect]
     Indication: RASH
     Route: 061

REACTIONS (6)
  - APPLICATION SITE RASH [None]
  - CONDITION AGGRAVATED [None]
  - ERYTHEMA [None]
  - PYREXIA [None]
  - SKIN EXFOLIATION [None]
  - URTICARIA [None]
